FAERS Safety Report 25112001 (Version 1)
Quarter: 2025Q1

REPORT INFORMATION
  Report Type: Spontaneous
  Country: US (occurrence: US)
  Receive Date: 20250324
  Receipt Date: 20250324
  Transmission Date: 20250409
  Serious: Yes (Hospitalization)
  Sender: MYLAN
  Company Number: US-MYLANLABS-2025M1024465

PATIENT
  Age: 38 Year
  Sex: Male

DRUGS (3)
  1. TACROLIMUS [Suspect]
     Active Substance: TACROLIMUS
     Indication: Immunosuppressant drug therapy
  2. DOXYCYCLINE [Suspect]
     Active Substance: DOXYCYCLINE
     Indication: Alopecia scarring
  3. AMOXICILLIN [Suspect]
     Active Substance: AMOXICILLIN
     Indication: Alopecia scarring

REACTIONS (2)
  - Squamous cell carcinoma [Recovered/Resolved]
  - Drug ineffective [Unknown]
